FAERS Safety Report 21305051 (Version 4)
Quarter: 2022Q3

REPORT INFORMATION
  Report Type: Report from Study
  Country: TR (occurrence: None)
  Receive Date: 20220907
  Receipt Date: 20220920
  Transmission Date: 20221027
  Serious: Yes (Hospitalization)
  Sender: FDA-Public Use
  Company Number: TR-ROCHE-3173127

PATIENT
  Age: 69 Year
  Sex: Male
  Weight: 81 kg

DRUGS (21)
  1. TRASTUZUMAB [Suspect]
     Active Substance: TRASTUZUMAB
     Indication: Malignant neoplasm of unknown primary site
     Dosage: DATE OF THE MOST RECENT DOSE OF TRASTUZUMAB PRIOR TO AE: 08/AUG/2022
     Route: 058
     Dates: start: 20211220
  2. PERTUZUMAB [Suspect]
     Active Substance: PERTUZUMAB
     Indication: Malignant neoplasm of unknown primary site
     Dosage: DATE OF THE MOST RECENT DOSE OF PERTUZUMAB PRIOR TO AE: 08/AUG/2022
     Route: 042
     Dates: start: 20211129
  3. CARBOPLATIN [Suspect]
     Active Substance: CARBOPLATIN
     Indication: Malignant neoplasm of unknown primary site
     Dosage: DATE OF THE MOST RECENT DOSE CARBOPLATIN: 15/NOV/2021
     Route: 042
     Dates: start: 20210920
  4. CARBOPLATIN [Suspect]
     Active Substance: CARBOPLATIN
     Dosage: DATE OF THE MOST RECENT DOSE CARBOPLATIN: 24/JAN/2022
     Route: 042
     Dates: start: 20211129
  5. PACLITAXEL [Suspect]
     Active Substance: PACLITAXEL
     Indication: Malignant neoplasm of unknown primary site
     Dosage: DATE OF THE MOST RECENT DOSE OF PACLITAXEL PRIOR TO AE: 15/NOV/2021
     Route: 042
     Dates: start: 20210920
  6. PACLITAXEL [Suspect]
     Active Substance: PACLITAXEL
     Dosage: DATE OF THE MOST RECENT DOSE OF PACLITAXEL PRIOR TO AE: 24/JAN/2022
     Route: 042
     Dates: start: 20211129
  7. LEVOCETIRIZINE DIHYDROCHLORIDE\MONTELUKAST SODIUM [Concomitant]
     Active Substance: LEVOCETIRIZINE DIHYDROCHLORIDE\MONTELUKAST SODIUM
     Indication: Asthma
     Dosage: 5/10 MG
     Route: 048
  8. CATAFLAM [Concomitant]
     Active Substance: DICLOFENAC POTASSIUM
     Route: 048
     Dates: start: 20210916
  9. NEXIUM [Concomitant]
     Active Substance: ESOMEPRAZOLE MAGNESIUM
     Route: 048
     Dates: start: 20210916
  10. NEXIUM [Concomitant]
     Active Substance: ESOMEPRAZOLE MAGNESIUM
     Route: 048
     Dates: start: 20211005
  11. FEXADYNE [Concomitant]
     Indication: Rash
     Route: 048
     Dates: start: 20220627
  12. FELDENE [Concomitant]
     Active Substance: PIROXICAM
     Route: 061
     Dates: start: 20220718
  13. RIFAXON [Concomitant]
     Route: 061
     Dates: start: 20220201, end: 20220201
  14. MEGESTROL ACETATE [Concomitant]
     Active Substance: MEGESTROL ACETATE
     Indication: Weight decreased
     Route: 048
     Dates: start: 20211005
  15. METOPROLOL [Concomitant]
     Active Substance: METOPROLOL
     Indication: Arrhythmia supraventricular
     Route: 048
     Dates: start: 20211019
  16. ESCITALOPRAM OXALATE [Concomitant]
     Active Substance: ESCITALOPRAM OXALATE
     Indication: Anxiety
     Route: 048
     Dates: start: 20211106
  17. LOPERMID [Concomitant]
     Route: 048
     Dates: start: 20211213
  18. NYSTATIN [Concomitant]
     Active Substance: NYSTATIN
     Indication: Stomatitis
     Route: 048
     Dates: start: 20211228
  19. SUCRALFATE [Concomitant]
     Active Substance: SUCRALFATE
     Indication: Stomatitis
     Route: 048
     Dates: start: 20211228
  20. UREDERM LIPO [Concomitant]
     Indication: Rash
     Route: 061
     Dates: start: 20220120
  21. MAGNESIUM [Concomitant]
     Active Substance: MAGNESIUM
     Indication: Hypomagnesaemia
     Route: 048
     Dates: start: 20220124

REACTIONS (3)
  - Dizziness [Recovered/Resolved]
  - Balance disorder [Recovered/Resolved]
  - Altered state of consciousness [Not Recovered/Not Resolved]

NARRATIVE: CASE EVENT DATE: 20220826
